FAERS Safety Report 15321529 (Version 1)
Quarter: 2018Q3

REPORT INFORMATION
  Report Type: Spontaneous
  Country: US (occurrence: US)
  Receive Date: 20180821
  Receipt Date: 20180821
  Transmission Date: 20181010
  Serious: Yes (Disabling)
  Sender: FDA-Public Use
  Company Number: None

PATIENT
  Age: 51 Year
  Sex: Female
  Weight: 114.75 kg

DRUGS (6)
  1. HCTZ [Concomitant]
     Active Substance: HYDROCHLOROTHIAZIDE
  2. DULOXETINE 60 MG [Suspect]
     Active Substance: DULOXETINE
     Indication: DEPRESSION
     Dosage: ?          QUANTITY:60 CAPSULE(S);?
     Route: 048
     Dates: start: 20180401, end: 20180809
  3. DULOXETINE 60 MG [Suspect]
     Active Substance: DULOXETINE
     Indication: PLANTAR FASCIITIS
     Dosage: ?          QUANTITY:60 CAPSULE(S);?
     Route: 048
     Dates: start: 20180401, end: 20180809
  4. CYMBALTA [Concomitant]
     Active Substance: DULOXETINE HYDROCHLORIDE
  5. DULOXETINE HCL DR CAPS 60MG [Suspect]
     Active Substance: DULOXETINE HYDROCHLORIDE
     Indication: DEPRESSION
     Dosage: ?          QUANTITY:90 CAPSULE(S);?
     Route: 048
     Dates: start: 20180808
  6. DULOXETINE 60 MG [Suspect]
     Active Substance: DULOXETINE
     Indication: ANXIETY
     Dosage: ?          QUANTITY:60 CAPSULE(S);?
     Route: 048
     Dates: start: 20180401, end: 20180809

REACTIONS (9)
  - Pain [None]
  - Abnormal dreams [None]
  - Abdominal distension [None]
  - Fatigue [None]
  - Dizziness [None]
  - Muscular weakness [None]
  - Flatulence [None]
  - Crying [None]
  - Anger [None]

NARRATIVE: CASE EVENT DATE: 20180821
